FAERS Safety Report 10094636 (Version 1)
Quarter: 2014Q2

REPORT INFORMATION
  Report Type: Spontaneous
  Country: US (occurrence: US)
  Receive Date: 20140422
  Receipt Date: 20140422
  Transmission Date: 20141212
  Serious: Yes (Other)
  Sender: FDA-Public Use
  Company Number: US-AMGEN INC.-USASP2014027677

PATIENT
  Sex: Female

DRUGS (8)
  1. PROLIA [Suspect]
     Indication: OSTEOPOROSIS POSTMENOPAUSAL
     Dosage: UNK
     Route: 065
     Dates: start: 20140228
  2. SYNTHROID [Concomitant]
     Dosage: 100 MUG, QD
  3. DIOVAN [Concomitant]
     Dosage: 80 MG, QD
  4. SINGULAIR [Concomitant]
     Dosage: 10 MG, QD
  5. LORATADINE [Concomitant]
     Dosage: 5 MG, QD
  6. NEXIUM                             /01479302/ [Concomitant]
     Dosage: 40 MG, QD
  7. COLCRYS [Concomitant]
     Indication: ARTHRITIS
     Dosage: 0.6 MG, BID
  8. CHLOROQUINE [Concomitant]

REACTIONS (1)
  - Rash macular [Recovered/Resolved]
